FAERS Safety Report 21438732 (Version 1)
Quarter: 2022Q4

REPORT INFORMATION
  Report Type: Spontaneous
  Country: US (occurrence: None)
  Receive Date: 20221007
  Receipt Date: 20221007
  Transmission Date: 20230112
  Serious: Yes (Hospitalization)
  Sender: FDA-Public Use
  Company Number: None

PATIENT
  Age: 57 Year
  Sex: Female
  Weight: 56.7 kg

DRUGS (11)
  1. HILTONOL [Suspect]
     Active Substance: HILTONOL
  2. PEMBROLIZUMAB [Suspect]
     Active Substance: PEMBROLIZUMAB
  3. CALCIUM CARBONATE\CHOLECALCIFEROL [Concomitant]
     Active Substance: CALCIUM CARBONATE\CHOLECALCIFEROL
  4. SODIUM HYPOCHLORITE [Concomitant]
     Active Substance: SODIUM HYPOCHLORITE
  5. GABAPENTIN [Concomitant]
  6. FERROUS SULFATE [Concomitant]
     Active Substance: FERROUS SULFATE
  7. METRONIDAZOLE [Concomitant]
     Active Substance: METRONIDAZOLE
  8. AMOXICILLIN-CLAVULANTE [Concomitant]
  9. DOXYCYCLINE [Concomitant]
     Active Substance: DOXYCYCLINE
  10. NOREPINEPHRINE [Concomitant]
     Active Substance: NOREPINEPHRINE
  11. FENTANYL [Concomitant]
     Active Substance: FENTANYL

REACTIONS (2)
  - Dyspnoea [None]
  - Disease progression [None]

NARRATIVE: CASE EVENT DATE: 20220805
